FAERS Safety Report 6556470-6 (Version None)
Quarter: 2010Q1

REPORT INFORMATION
  Report Type: 
  Country: None (occurrence: None)
  Receive Date: 20100128
  Receipt Date: 20100115
  Transmission Date: 20100710
  Serious: Yes (Death, Other)
  Sender: FDA-Public Use
  Company Number: BR-MERCK-0910BRA00008

PATIENT
  Age: 40 Year
  Sex: Female

DRUGS (8)
  1. ISENTRESS [Suspect]
     Indication: HIV INFECTION
     Route: 048
     Dates: start: 20090101, end: 20090901
  2. DARUNAVIR [Suspect]
     Indication: HIV INFECTION
     Route: 065
     Dates: start: 20090101, end: 20090101
  3. DARUNAVIR [Suspect]
     Route: 065
     Dates: start: 20090101, end: 20090101
  4. TENOFOVIR [Concomitant]
     Indication: HIV INFECTION
     Route: 065
     Dates: start: 20090101, end: 20090101
  5. TENOFOVIR [Concomitant]
     Route: 065
     Dates: start: 20090101, end: 20090101
  6. STAVUDINE [Concomitant]
     Indication: HIV INFECTION
     Route: 065
     Dates: start: 20090101, end: 20090101
  7. STAVUDINE [Concomitant]
     Route: 065
     Dates: start: 20090101, end: 20090101
  8. STOCRIN [Suspect]
     Indication: HIV INFECTION
     Route: 065
     Dates: start: 20090101, end: 20090101

REACTIONS (3)
  - DEATH [None]
  - RASH [None]
  - STEVENS-JOHNSON SYNDROME [None]
